FAERS Safety Report 9883790 (Version 2)
Quarter: 2014Q1

REPORT INFORMATION
  Report Type: Spontaneous
  Country: FR (occurrence: FR)
  Receive Date: 20140210
  Receipt Date: 20140210
  Transmission Date: 20141002
  Serious: Yes (Other)
  Sender: FDA-Public Use
  Company Number: FR-ROCHE-1336668

PATIENT
  Age: 8 Year
  Sex: Male
  Weight: 21 kg

DRUGS (4)
  1. RIVOTRIL [Suspect]
     Indication: EPILEPSY
     Route: 048
  2. MICROPAKINE [Concomitant]
     Indication: EPILEPSY
     Route: 048
  3. TEGRETOL [Concomitant]
     Indication: EPILEPSY
     Route: 048
  4. TERCIAN [Concomitant]
     Indication: ANXIETY
     Route: 048

REACTIONS (3)
  - Intentional drug misuse [Unknown]
  - Overdose [Unknown]
  - Sedation [Recovered/Resolved]
